FAERS Safety Report 6471675-0 (Version None)
Quarter: 2009Q4

REPORT INFORMATION
  Report Type: 
  Country: None (occurrence: None)
  Receive Date: 20091203
  Receipt Date: 20080325
  Transmission Date: 20100525
  Serious: No
  Sender: FDA-Public Use
  Company Number: US-ELI_LILLY_AND_COMPANY-US200803005975

PATIENT
  Age: 88 Year
  Sex: Female

DRUGS (4)
  1. ZYPREXA [Suspect]
     Indication: DELIRIUM
     Dosage: 2.5 MG, UNK
     Dates: start: 20080301
  2. ZYPREXA [Suspect]
     Dosage: 5 MG, UNK
     Dates: start: 20080301
  3. ZYPREXA [Suspect]
     Dosage: 1.67 MG, UNK
     Dates: start: 20080301
  4. ZYPREXA [Suspect]
     Dosage: 1.25 MG, UNK
     Dates: start: 20080317, end: 20080325

REACTIONS (5)
  - ABNORMAL DREAMS [None]
  - ANXIETY [None]
  - BLOOD URINE PRESENT [None]
  - DRUG INEFFECTIVE [None]
  - SOMNOLENCE [None]
